FAERS Safety Report 8338644-7 (Version None)
Quarter: 2012Q2

REPORT INFORMATION
  Report Type: 
  Country: None (occurrence: None)
  Receive Date: 20120504
  Receipt Date: 20120503
  Transmission Date: 20120825
  Serious: No
  Sender: FDA-Public Use
  Company Number: US-PFIZER INC-2012109425

PATIENT
  Sex: Female
  Weight: 158.73 kg

DRUGS (6)
  1. PRAVASTATIN [Concomitant]
     Indication: BLOOD CHOLESTEROL INCREASED
     Dosage: 20 MG, 1X/DAY
  2. IPRATROPIUM BROMIDE AND ALBUTEROL SULFATE [Interacting]
     Indication: ASTHMA
     Dosage: 0.5/2.5 MG, 4X/DAY
  3. CHANTIX [Interacting]
     Dosage: UNK
     Route: 048
  4. ALBUTEROL [Interacting]
     Indication: ASTHMA
     Dosage: 3 MG, 4X/DAY
  5. LISINOPRIL [Concomitant]
     Indication: HYPERTENSION
     Dosage: 10 MG, 1X/DAY
  6. CHANTIX [Suspect]
     Indication: SMOKING CESSATION THERAPY
     Dosage: 0.5 MG, 1X/DAY
     Route: 048
     Dates: start: 20120201

REACTIONS (2)
  - DRUG INEFFECTIVE [None]
  - DRUG INTERACTION [None]
